FAERS Safety Report 7900291-6 (Version None)
Quarter: 2011Q4

REPORT INFORMATION
  Report Type: 
  Country: None (occurrence: None)
  Receive Date: 20111108
  Receipt Date: 20111031
  Transmission Date: 20120403
  Serious: Yes (Life-Threatening, Hospitalization)
  Sender: FDA-Public Use
  Company Number: US-CELGENEUS-163-21880-11100340

PATIENT
  Age: 63 Year
  Sex: Female

DRUGS (8)
  1. ZOLOFT [Concomitant]
     Dosage: 100 MILLIGRAM
     Route: 048
  2. ASPIRIN [Concomitant]
     Dosage: 81 MILLIGRAM
     Route: 048
  3. PRILOSEC [Concomitant]
     Dosage: 20 MILLIGRAM
     Route: 048
  4. REVLIMID [Suspect]
     Indication: MULTIPLE MYELOMA
     Dosage: 10 MILLIGRAM
     Route: 048
     Dates: start: 20110826, end: 20110904
  5. AMBIEN [Concomitant]
     Dosage: 10 MILLIGRAM
     Route: 048
  6. SYNTHROID [Concomitant]
     Dosage: .1 MILLIGRAM
     Route: 048
  7. AMARYL [Concomitant]
     Dosage: 2 MILLIGRAM
     Route: 048
  8. POTASSIUM CHLORIDE [Concomitant]
     Dosage: 10 TABLET
     Route: 048

REACTIONS (2)
  - INTERSTITIAL LUNG DISEASE [None]
  - SEPTIC SHOCK [None]
